FAERS Safety Report 24029507 (Version 2)
Quarter: 2024Q3

REPORT INFORMATION
  Report Type: Spontaneous
  Country: US (occurrence: US)
  Receive Date: 20240628
  Receipt Date: 20240731
  Transmission Date: 20241016
  Serious: No
  Sender: PFIZER
  Company Number: US-PFIZER INC-202400201882

PATIENT
  Age: 70 Year
  Sex: Female

DRUGS (1)
  1. SOMAVERT [Suspect]
     Active Substance: PEGVISOMANT
     Dosage: 20 MG, WEEKLY (20MG EVERY 7 DAYS)

REACTIONS (4)
  - Blood test abnormal [Unknown]
  - Liver disorder [Unknown]
  - Liver function test increased [Unknown]
  - Off label use [Unknown]
